FAERS Safety Report 21465307 (Version 1)
Quarter: 2022Q4

REPORT INFORMATION
  Report Type: Spontaneous
  Country: US (occurrence: None)
  Receive Date: 20221014
  Receipt Date: 20221014
  Transmission Date: 20230112
  Serious: No
  Sender: FDA-Public Use
  Company Number: None

PATIENT
  Age: 60 Year
  Sex: Male
  Weight: 68 kg

DRUGS (1)
  1. TBO-FILGRASTIM [Suspect]
     Active Substance: TBO-FILGRASTIM
     Indication: Amyloidosis
     Dosage: 780 MCG EVERY DAY SQ
     Route: 058
     Dates: start: 20220331, end: 20220331

REACTIONS (4)
  - Chest pain [None]
  - Back pain [None]
  - Electrocardiogram ST segment abnormal [None]
  - Sinus bradycardia [None]

NARRATIVE: CASE EVENT DATE: 20220331
